FAERS Safety Report 23798020 (Version 1)
Quarter: 2024Q2

REPORT INFORMATION
  Report Type: Spontaneous
  Country: FR (occurrence: FR)
  Receive Date: 20240430
  Receipt Date: 20240430
  Transmission Date: 20240715
  Serious: Yes (Hospitalization)
  Sender: FDA-Public Use
  Company Number: None

PATIENT
  Age: 19 Year
  Sex: Male

DRUGS (5)
  1. DIAZEPAM [Suspect]
     Active Substance: DIAZEPAM
     Indication: Psychotic disorder
     Route: 048
     Dates: start: 20240113, end: 20240220
  2. LOXAPINE SUCCINATE [Suspect]
     Active Substance: LOXAPINE SUCCINATE
     Indication: Psychotic disorder
     Route: 048
     Dates: start: 20240113, end: 20240219
  3. VALPROIC ACID [Suspect]
     Active Substance: VALPROIC ACID
     Indication: Psychotic disorder
     Dosage: ACIDE VALPROIQUE
     Route: 048
     Dates: start: 20240120
  4. TRIMEPRAZINE [Suspect]
     Active Substance: TRIMEPRAZINE
     Indication: Psychotic disorder
     Route: 048
     Dates: start: 20240212, end: 20240219
  5. RISPERIDONE [Suspect]
     Active Substance: RISPERIDONE
     Indication: Psychotic disorder
     Route: 048
     Dates: start: 20240113, end: 20240219

REACTIONS (1)
  - Catatonia [Recovering/Resolving]

NARRATIVE: CASE EVENT DATE: 20240217
